FAERS Safety Report 14853212 (Version 25)
Quarter: 2018Q4

REPORT INFORMATION
  Report Type: Spontaneous
  Country: DE (occurrence: DE)
  Receive Date: 20180507
  Receipt Date: 20181102
  Transmission Date: 20190204
  Serious: Yes (Hospitalization)
  Sender: FDA-Public Use
  Company Number: DE-PFIZER INC-2018186763

PATIENT
  Age: 62 Year
  Sex: Female
  Weight: 45 kg

DRUGS (55)
  1. FUROSEMID [Interacting]
     Active Substance: FUROSEMIDE
     Dosage: 160 MG, QD
     Route: 048
  2. DUROGESIC [Interacting]
     Active Substance: FENTANYL
     Dosage: 50 UG, UNK
     Route: 047
  3. VIANI [Interacting]
     Active Substance: FLUTICASONE PROPIONATE\SALMETEROL XINAFOATE
     Dosage: 1 DF, QD
     Route: 055
  4. NOVALGIN (METAMIZOLE SODIUM) [Interacting]
     Active Substance: METAMIZOLE SODIUM
     Dosage: 90 DF, QD, UNIT DOSE: 30 DROPS
     Route: 048
  5. MUCOSOLVAN [Interacting]
     Active Substance: AMBROXOL HYDROCHLORIDE
     Dosage: 30 GTT, AS NEEDED (REQUIREMENT, BEDARFAS NECESSARY)
     Route: 048
  6. MAGNESIUM VERLA [MAGNESIUM CITRATE;MAGNESIUM GLUTAMATE;MAGNESIUM NICOT [Interacting]
     Active Substance: MAGNESIUM
     Dosage: 1 DF, QD
     Route: 048
  7. SPIRONOLACTON [Interacting]
     Active Substance: SPIRONOLACTONE
     Dosage: 200 MG, QD,100 MG, BID (2-0-0-0)
     Route: 048
  8. NOVALGIN (METAMIZOLE SODIUM) [Interacting]
     Active Substance: METAMIZOLE SODIUM
     Dosage: 30 GTT DROPS, Q8H
     Route: 048
  9. MAGNESIUM VERLA [MAGNESIUM CITRATE;MAGNESIUM GLUTAMATE;MAGNESIUM NICOT [Interacting]
     Active Substance: MAGNESIUM
     Dosage: BID
     Route: 048
  10. MAGNESIUM VERLA [MAGNESIUM CITRATE;MAGNESIUM GLUTAMATE;MAGNESIUM NICOT [Interacting]
     Active Substance: MAGNESIUM
     Dosage: 2 OT, QD
     Route: 048
  11. CAFFEINE/PARACETAMOL/PROPYPHENAZONE [Interacting]
     Active Substance: ACETAMINOPHEN\CAFFEINE\PROPYPHENAZONE
     Dosage: 30 GTT, Q8HR
     Route: 048
  12. SIMVASTATIN. [Interacting]
     Active Substance: SIMVASTATIN
     Dosage: 40 MG,QD (0-0-1-0)
     Route: 048
  13. SPIRONOLACTON [Interacting]
     Active Substance: SPIRONOLACTONE
     Dosage: 200 MG, QD
     Route: 048
  14. URSOFALK [Interacting]
     Active Substance: URSODIOL
     Dosage: 500 MG, BID
     Route: 048
  15. MAGNESIUM VERLA [Interacting]
     Active Substance: MAGNESIUM
     Dosage: 2 DF, DAILY(2-0-0-0)
     Route: 048
  16. EZETROL [Interacting]
     Active Substance: EZETIMIBE
     Dosage: 10 MG,QD (10 MG,1-0-0-0)
     Route: 048
  17. IMUREK [Interacting]
     Active Substance: AZATHIOPRINE
     Dosage: 50 MG, QD
     Route: 048
  18. ESIDRIX [Interacting]
     Active Substance: HYDROCHLOROTHIAZIDE
     Dosage: 25 MG, QD (1-0-0-0)
     Route: 048
  19. NOVALGIN (METAMIZOLE SODIUM) [Interacting]
     Active Substance: METAMIZOLE SODIUM
     Dosage: 30 OT, TID (30 TROPFEN, 1-1-1-0)
     Route: 048
  20. MAGNESIUM VERLA [Interacting]
     Active Substance: MAGNESIUM
     Dosage: 1 DF, QD
  21. ALUMINIUM HYDROXIDE W/MAGNESIUM HYDROXIDE [Interacting]
     Active Substance: ALUMINUM HYDROXIDE\MAGNESIUM HYDROXIDE
     Dosage: 2 DF, QD
     Route: 048
  22. POTASSIUM CHLORIDE. [Interacting]
     Active Substance: POTASSIUM CHLORIDE
     Dosage: 100 MG, QD (1-0-0-0)
     Route: 048
  23. SPIRIVA [Interacting]
     Active Substance: TIOTROPIUM BROMIDE MONOHYDRATE
     Dosage: 36 UG, QD, 18 UG, BID (1-0-1-0)
     Route: 055
  24. FUROSEMID [Interacting]
     Active Substance: FUROSEMIDE
     Dosage: 40 MG,QD
     Route: 048
  25. LEVODOPA BENSERAZIDE [Interacting]
     Active Substance: BENSERAZIDE\LEVODOPA
     Dosage: 100 MG, QD(100 MG 1-0-2.5-0)
     Route: 048
  26. SPIRONOLACTON [Interacting]
     Active Substance: SPIRONOLACTONE
     Dosage: 2 DF, QD
     Route: 048
  27. SPIRONOLACTON [Interacting]
     Active Substance: SPIRONOLACTONE
     Dosage: UNK
  28. IMUREK [Interacting]
     Active Substance: AZATHIOPRINE
     Dosage: 50 MG, UNK
     Route: 048
  29. NOVALGIN (METAMIZOLE SODIUM) [Interacting]
     Active Substance: METAMIZOLE SODIUM
     Dosage: 30 TROPFEN, 1-1-1-0
     Route: 048
  30. KALINOR (CITRIC ACID/POTASSIUM BICARBONATE/POTASSIUM CITRATE) [Interacting]
     Active Substance: CITRIC ACID MONOHYDRATE\POTASSIUM BICARBONATE\POTASSIUM CITRATE
     Dosage: 100 MG,QD(1-0-0-0)
     Route: 048
  31. LEVOPAR [Interacting]
     Active Substance: BENSERAZIDE\LEVODOPA
     Dosage: 100 MG, QD (1-0-2.5-0)
     Route: 048
  32. CAFFEINE/PARACETAMOL/PROPYPHENAZONE [Interacting]
     Active Substance: ACETAMINOPHEN\CAFFEINE\PROPYPHENAZONE
     Dosage: UNK, TID
     Route: 048
  33. MAGNESIUM [Interacting]
     Active Substance: MAGNESIUM
     Dosage: 2 DF, 2X/DAY
     Route: 048
  34. PARACETAMOL W/PENTAZOCINE [Interacting]
     Active Substance: ACETAMINOPHEN\PENTAZOCINE HYDROCHLORIDE
     Dosage: 90 DF, QD, UNIT DOSE: 30 DROPS
     Route: 048
  35. FUROSEMID [Interacting]
     Active Substance: FUROSEMIDE
     Dosage: 40 MG EVERY 6 HOURS
     Route: 048
  36. LACTULOSE AL [Interacting]
     Active Substance: LACTULOSE
     Dosage: 1 DF, QD
     Route: 048
  37. VIANI [Interacting]
     Active Substance: FLUTICASONE PROPIONATE\SALMETEROL XINAFOATE
     Dosage: 1 DF, 1X/DAY(RESPIRATORY (INHALATION)50|500 ?G, 1-0-1-0 )
     Route: 055
  38. PANTOZOL [Suspect]
     Active Substance: PANTOPRAZOLE SODIUM
     Dosage: 40 MG, QD (1-0-0-0)
     Route: 048
  39. RAPAMUNE [Interacting]
     Active Substance: SIROLIMUS
     Dosage: UNK
     Route: 048
  40. SPIRIVA [Interacting]
     Active Substance: TIOTROPIUM BROMIDE MONOHYDRATE
     Dosage: 18 UG,BID(1-0-1-0 )
     Route: 055
  41. VIGANTOLETTEN [Interacting]
     Active Substance: CHOLECALCIFEROL
     Dosage: 100 OT, QD (100 IE, 1-0-0-0)
     Route: 048
  42. DUROGESIC [Interacting]
     Active Substance: FENTANYL
     Dosage: 50 UG, QD
     Route: 048
  43. SPIRONOLACTON [Interacting]
     Active Substance: SPIRONOLACTONE
     Dosage: 100 MG, QD
     Route: 048
  44. SPIRONOLACTON [Interacting]
     Active Substance: SPIRONOLACTONE
     Dosage: 200 MG, BID (EVERY 12 HOURS)
     Route: 048
  45. LEVOPAR [Interacting]
     Active Substance: BENSERAZIDE\LEVODOPA
     Dosage: 100 MG, EVERY 12 HOURS, BID
     Route: 048
  46. MAGNESIUM VERLA [MAGNESIUM CITRATE;MAGNESIUM GLUTAMATE;MAGNESIUM NICOT [Interacting]
     Active Substance: MAGNESIUM
     Dosage: 2 DF, 1X/DAY
     Route: 048
  47. CAFFEINE/PARACETAMOL/PROPYPHENAZONE [Interacting]
     Active Substance: ACETAMINOPHEN\CAFFEINE\PROPYPHENAZONE
     Dosage: QD
     Route: 048
  48. MAGNESIUM [Interacting]
     Active Substance: MAGNESIUM
     Dosage: BID
     Route: 048
  49. PARACETAMOL W/PENTAZOCINE [Interacting]
     Active Substance: ACETAMINOPHEN\PENTAZOCINE HYDROCHLORIDE
     Dosage: 1 DF, QD
     Route: 048
  50. PARACETAMOL [Interacting]
     Active Substance: ACETAMINOPHEN
     Dosage: 90 DF, QD
     Route: 048
  51. RAPAMUNE [Interacting]
     Active Substance: SIROLIMUS
     Dosage: 1 MG, QD (1-0-0-0)
     Route: 048
  52. LEVODOPA BENSERAZIDE [Interacting]
     Active Substance: BENSERAZIDE\LEVODOPA
     Dosage: 100 MG, BID
     Route: 048
  53. LACTULOSE AL [Interacting]
     Active Substance: LACTULOSE
     Dosage: 1 DF, QD, 1 MEASURING CUP
     Route: 048
  54. VIANI [Interacting]
     Active Substance: FLUTICASONE PROPIONATE\SALMETEROL XINAFOATE
     Dosage: 2 DF, QD, 50|500 ?G,
     Route: 055
  55. POTASSIUM CHLORIDE. [Interacting]
     Active Substance: POTASSIUM CHLORIDE
     Dosage: 100 MG, QD
     Route: 048

REACTIONS (3)
  - General physical health deterioration [Unknown]
  - Drug interaction [Unknown]
  - Product prescribing error [Unknown]

NARRATIVE: CASE EVENT DATE: 20150916
